FAERS Safety Report 14905776 (Version 3)
Quarter: 2019Q2

REPORT INFORMATION
  Report Type: Spontaneous
  Country: US (occurrence: US)
  Receive Date: 20180517
  Receipt Date: 20190415
  Transmission Date: 20190711
  Serious: Yes (Hospitalization, Other)
  Sender: FDA-Public Use
  Company Number: US-SA-2018SA041482

PATIENT
  Age: 61 Year
  Sex: Female
  Weight: 110 kg

DRUGS (4)
  1. METFORMIN [Concomitant]
     Active Substance: METFORMIN HYDROCHLORIDE
     Dosage: UNKNOWN
     Route: 065
  2. LANTUS SOLOSTAR [Suspect]
     Active Substance: INSULIN GLARGINE
     Indication: LATENT AUTOIMMUNE DIABETES IN ADULTS
     Dosage: 10 U, QD
     Route: 051
     Dates: start: 20180208
  3. LANTUS SOLOSTAR [Suspect]
     Active Substance: INSULIN GLARGINE
     Indication: DIABETES MELLITUS
     Dosage: 15 U, QD
     Route: 042
  4. NOVOLOG [Concomitant]
     Active Substance: INSULIN ASPART
     Dosage: UNK UNK, TID
     Route: 065

REACTIONS (21)
  - Angle closure glaucoma [Unknown]
  - Injection site rash [Unknown]
  - Gait disturbance [Unknown]
  - Limb discomfort [Unknown]
  - Thyroid disorder [Unknown]
  - Urinary tract infection [Unknown]
  - Neuropathy peripheral [Unknown]
  - Nephrolithiasis [Unknown]
  - Pain [Recovering/Resolving]
  - Peripheral swelling [Unknown]
  - Injection site pain [Unknown]
  - Injection site pain [Recovering/Resolving]
  - Injection site haemorrhage [Recovering/Resolving]
  - Injection site discomfort [Unknown]
  - Alopecia [Unknown]
  - Temperature intolerance [Unknown]
  - Injection site pruritus [Recovering/Resolving]
  - Injection site bruising [Unknown]
  - Liver disorder [Unknown]
  - Blood glucose increased [Unknown]
  - Product administered at inappropriate site [Unknown]

NARRATIVE: CASE EVENT DATE: 201802
